FAERS Safety Report 15107617 (Version 2)
Quarter: 2018Q3

REPORT INFORMATION
  Report Type: Report from Study
  Country: IT (occurrence: IT)
  Receive Date: 20180704
  Receipt Date: 20180709
  Transmission Date: 20181010
  Serious: Yes (Other)
  Sender: FDA-Public Use
  Company Number: IT-TEVA-2018-IT-918465

PATIENT
  Age: 85 Year
  Sex: Female

DRUGS (4)
  1. CARDIOASPIRIN 100 MG COMPRESSE GASTRORESISTENTI [Suspect]
     Active Substance: ASPIRIN
     Dosage: 100 MILLIGRAM DAILY;
     Route: 048
     Dates: start: 20070101, end: 20170801
  2. ATENOLOL. [Suspect]
     Active Substance: ATENOLOL
     Dosage: 25 MILLIGRAM DAILY;
     Route: 048
     Dates: start: 20070101, end: 20170801
  3. BLOPRESS 16 MG COMPRESSE [Suspect]
     Active Substance: CANDESARTAN CILEXETIL
     Indication: HYPERTENSION
     Dosage: 32 MILLIGRAM DAILY;
     Route: 048
     Dates: start: 20070101, end: 20170801
  4. ADALAT CRONO 30 MG COMPRESSE A RILASCIO MODIFICATO [Suspect]
     Active Substance: NIFEDIPINE
     Indication: HYPERTENSION
     Dosage: 30 MILLIGRAM DAILY;
     Route: 048
     Dates: start: 20070101, end: 20170801

REACTIONS (2)
  - Tongue oedema [Recovering/Resolving]
  - Angioedema [Recovering/Resolving]

NARRATIVE: CASE EVENT DATE: 20170801
